FAERS Safety Report 7372322-6 (Version None)
Quarter: 2011Q1

REPORT INFORMATION
  Report Type: 
  Country: None (occurrence: None)
  Receive Date: 20110324
  Receipt Date: 20110316
  Transmission Date: 20110831
  Serious: Yes (Death)
  Sender: FDA-Public Use
  Company Number: B0704394A

PATIENT
  Sex: Male

DRUGS (7)
  1. RIZE [Concomitant]
     Indication: DEPRESSION
     Route: 048
     Dates: start: 20110105
  2. REVOLADE [Suspect]
     Indication: IDIOPATHIC THROMBOCYTOPENIC PURPURA
     Dosage: 12.5MG PER DAY
     Route: 048
     Dates: start: 20110114, end: 20110118
  3. PREDONINE [Concomitant]
     Route: 048
     Dates: start: 20100928
  4. NEORAL [Concomitant]
     Route: 048
     Dates: start: 20100105, end: 20110113
  5. TRANSAMIN [Concomitant]
     Indication: HAEMORRHAGE PROPHYLAXIS
     Route: 048
     Dates: start: 20100928
  6. PARIET [Concomitant]
     Route: 048
     Dates: start: 20100928
  7. ZYLORIC [Concomitant]
     Route: 048
     Dates: start: 20100928

REACTIONS (5)
  - AORTIC VALVE INCOMPETENCE [None]
  - INTERSTITIAL LUNG DISEASE [None]
  - PYREXIA [None]
  - WHITE BLOOD CELL COUNT INCREASED [None]
  - C-REACTIVE PROTEIN INCREASED [None]
